FAERS Safety Report 5775252-6 (Version None)
Quarter: 2008Q2

REPORT INFORMATION
  Report Type: 
  Country: None (occurrence: None)
  Receive Date: 20080612
  Receipt Date: 20080604
  Transmission Date: 20081010
  Serious: Yes (Hospitalization)
  Sender: FDA-Public Use
  Company Number: E2090-00423-SPO-JP

PATIENT
  Age: 66 Year
  Sex: Female

DRUGS (11)
  1. ZONISAMIDE [Suspect]
     Indication: PARKINSON'S DISEASE
     Dosage: 200 MG, ORAL
     Route: 048
     Dates: start: 20070822
  2. DOPS (DROXIDOPA) [Concomitant]
  3. SINEMET [Concomitant]
  4. BI SIFROL (PRAMIPEXOLE DIHYDROCHLORIDE) [Concomitant]
  5. SYMMETREL [Concomitant]
  6. ALSETIN (PRAVASTATIN SODIUM) [Concomitant]
  7. CINAL (CINAL) [Concomitant]
  8. PURSENNID (SENNA LEAF) [Concomitant]
  9. BLADDERON (FLAVOXATE HYDROCHLORIDE) [Concomitant]
  10. YOKU-KAN-SAN (YOKUKAN-SAN) [Concomitant]
  11. REQUIP [Concomitant]

REACTIONS (19)
  - ARTHRALGIA [None]
  - CHONDROCALCINOSIS PYROPHOSPHATE [None]
  - DRY SKIN [None]
  - DYSSTASIA [None]
  - ERYTHEMA [None]
  - ERYTHROMELALGIA [None]
  - FEELING HOT [None]
  - GAIT DISTURBANCE [None]
  - HYPERLIPIDAEMIA [None]
  - HYPOAESTHESIA [None]
  - ILL-DEFINED DISORDER [None]
  - LYMPHOCYTE STIMULATION TEST [None]
  - OSTEOARTHRITIS [None]
  - PAIN IN EXTREMITY [None]
  - PIGMENTATION DISORDER [None]
  - POOR PERIPHERAL CIRCULATION [None]
  - RED BLOOD CELL SEDIMENTATION RATE INCREASED [None]
  - SKIN EXFOLIATION [None]
  - SKIN HYPERTROPHY [None]
